FAERS Safety Report 11937067 (Version 2)
Quarter: 2016Q1

REPORT INFORMATION
  Report Type: Spontaneous
  Country: US (occurrence: US)
  Receive Date: 20160121
  Receipt Date: 20160229
  Transmission Date: 20160526
  Serious: Yes (Hospitalization, Other)
  Sender: FDA-Public Use
  Company Number: US-CONCORDIA PHARMACEUTICALS INC.-CO-PL-US-2016-018

PATIENT
  Age: 68 Year
  Sex: Female

DRUGS (28)
  1. METHOTREXATE [Concomitant]
     Active Substance: METHOTREXATE
  2. L-THYROXIN [Concomitant]
     Active Substance: LEVOTHYROXINE SODIUM
  3. POTASSIUM [Concomitant]
     Active Substance: POTASSIUM
  4. LASIX [Suspect]
     Active Substance: FUROSEMIDE
     Indication: DIURETIC THERAPY
     Route: 048
  5. VERPAMIL [Suspect]
     Active Substance: VERAPAMIL HYDROCHLORIDE
     Indication: HEART RATE INCREASED
     Route: 048
  6. PLAQUENIL [Concomitant]
     Active Substance: HYDROXYCHLOROQUINE SULFATE
  7. FERROUS SULFATE [Concomitant]
     Active Substance: FERROUS SULFATE\FERROUS SULFATE, DRIED
  8. AMLODIPINE BESILATE [Concomitant]
     Active Substance: AMLODIPINE BESYLATE
     Dates: start: 20130109
  9. REVATIO [Suspect]
     Active Substance: SILDENAFIL CITRATE
     Indication: PULMONARY HYPERTENSION
     Route: 048
  10. REVATIO [Suspect]
     Active Substance: SILDENAFIL CITRATE
     Route: 065
     Dates: end: 20151110
  11. VERPAMIL [Suspect]
     Active Substance: VERAPAMIL HYDROCHLORIDE
     Indication: HYPERTENSION
     Route: 048
  12. CHONDROITIN W/GLUCOSAMINE [Concomitant]
  13. ASPIRIN. [Concomitant]
     Active Substance: ASPIRIN
  14. LASIX [Suspect]
     Active Substance: FUROSEMIDE
     Indication: FLUID RETENTION
     Route: 048
  15. LASIX [Suspect]
     Active Substance: FUROSEMIDE
     Route: 048
  16. BENICAR [Suspect]
     Active Substance: OLMESARTAN MEDOXOMIL
     Indication: HYPERTENSION
     Route: 048
     Dates: start: 2014
  17. VERPAMIL [Suspect]
     Active Substance: VERAPAMIL HYDROCHLORIDE
     Route: 048
  18. RANITIDINE [Concomitant]
     Active Substance: RANITIDINE\RANITIDINE HYDROCHLORIDE
  19. FOLIC ACID. [Concomitant]
     Active Substance: FOLIC ACID
  20. HYDROXYCHLOROQUINE SULFATE. [Suspect]
     Active Substance: HYDROXYCHLOROQUINE SULFATE
     Indication: OSTEOARTHRITIS
     Route: 048
  21. PROTONIX [Concomitant]
     Active Substance: PANTOPRAZOLE SODIUM
  22. OMEGA 3 [Concomitant]
     Active Substance: OMEGA-3 FATTY ACIDS
  23. CALCIUM/VITAMIN D [Concomitant]
     Active Substance: CALCIUM\VITAMIN D
  24. MIRAPEX [Concomitant]
     Active Substance: PRAMIPEXOLE DIHYDROCHLORIDE
  25. SPIRONOLACTONE. [Concomitant]
     Active Substance: SPIRONOLACTONE
     Dates: start: 201208
  26. BENICAR [Suspect]
     Active Substance: OLMESARTAN MEDOXOMIL
     Route: 048
     Dates: start: 2015
  27. PROAIR HFA [Concomitant]
     Active Substance: ALBUTEROL SULFATE
  28. ULORIC [Concomitant]
     Active Substance: FEBUXOSTAT

REACTIONS (17)
  - Haematochezia [Recovered/Resolved]
  - Pneumonia [None]
  - Pericardial effusion [None]
  - Anaemia [None]
  - Oedema [None]
  - Blood creatine increased [None]
  - Cardiac failure congestive [None]
  - Hypertension [None]
  - Contusion [None]
  - Eye infection [None]
  - Respiratory distress [None]
  - Feeling hot [Not Recovered/Not Resolved]
  - Fall [None]
  - Chronic kidney disease [Not Recovered/Not Resolved]
  - Gout [None]
  - Oedema peripheral [Not Recovered/Not Resolved]
  - Hypocalcaemia [Not Recovered/Not Resolved]

NARRATIVE: CASE EVENT DATE: 20141225
